FAERS Safety Report 12160452 (Version 1)
Quarter: 2016Q1

REPORT INFORMATION
  Report Type: Spontaneous
  Country: ES (occurrence: ES)
  Receive Date: 20160308
  Receipt Date: 20160308
  Transmission Date: 20160526
  Serious: Yes (Death, Hospitalization, Other)
  Sender: FDA-Public Use
  Company Number: ES-TEVA-641593ISR

PATIENT
  Age: 68 Year
  Sex: Male

DRUGS (4)
  1. AZILECT [Suspect]
     Active Substance: RASAGILINE MESYLATE
     Indication: PARKINSONISM
     Dosage: 1 MILLIGRAM DAILY;
     Route: 048
     Dates: start: 201411, end: 20150409
  2. MANIDIPINE HYDROCHLORIDE [Concomitant]
     Active Substance: MANIDIPINE HYDROCHLORIDE
     Dosage: 20 MILLIGRAM DAILY;
     Route: 048
     Dates: start: 201411, end: 20150328
  3. MIRAPEXIN 0.7 MG COMPRIMIDOS, 30 COMPRIMIDOS [Interacting]
     Active Substance: PRAMIPEXOLE
     Indication: PARKINSONISM
     Dosage: 6.3 MILLIGRAM DAILY;
     Route: 048
     Dates: start: 201411, end: 20150331
  4. MADOPAR 200MG/50MG COMPRIMIDOS, 100 COMPRIMIDOS [Interacting]
     Active Substance: BENSERAZIDE HYDROCHLORIDE\LEVODOPA
     Indication: PARKINSONISM
     Dosage: 9 DOSAGE FORMS DAILY; DF = 200MG/50MG
     Route: 048
     Dates: start: 201411, end: 20150409

REACTIONS (5)
  - Hallucination [Recovered/Resolved]
  - Consciousness fluctuating [Unknown]
  - Lower gastrointestinal haemorrhage [None]
  - Drug interaction [Unknown]
  - Hallucination, visual [None]

NARRATIVE: CASE EVENT DATE: 20150202
